FAERS Safety Report 24207515 (Version 1)
Quarter: 2024Q3

REPORT INFORMATION
  Report Type: Spontaneous
  Country: IN (occurrence: IN)
  Receive Date: 20240814
  Receipt Date: 20240814
  Transmission Date: 20241016
  Serious: Yes (Death, Hospitalization)
  Sender: STRIDES
  Company Number: IN-STRIDES ARCOLAB LIMITED-2024SP010084

PATIENT
  Age: 37 Year
  Sex: Female

DRUGS (10)
  1. DOXYCYCLINE [Suspect]
     Active Substance: DOXYCYCLINE\DOXYCYCLINE HYCLATE
     Indication: Scrub typhus
     Dosage: UNK; CAPSULE
     Route: 065
  2. DOXYCYCLINE [Suspect]
     Active Substance: DOXYCYCLINE\DOXYCYCLINE HYCLATE
     Indication: Sepsis
  3. MEROPENEM [Suspect]
     Active Substance: MEROPENEM
     Indication: Scrub typhus
     Dosage: UNK
     Route: 065
  4. MEROPENEM [Suspect]
     Active Substance: MEROPENEM
     Indication: Sepsis
  5. ARTESUNATE [Suspect]
     Active Substance: ARTESUNATE
     Indication: Scrub typhus
     Dosage: UNK
     Route: 042
  6. ARTESUNATE [Suspect]
     Active Substance: ARTESUNATE
     Indication: Sepsis
  7. TIGECYCLINE [Suspect]
     Active Substance: TIGECYCLINE
     Indication: Scrub typhus
     Dosage: UNK
     Route: 065
  8. TIGECYCLINE [Suspect]
     Active Substance: TIGECYCLINE
     Indication: Sepsis
  9. CASPOFUNGIN [Suspect]
     Active Substance: CASPOFUNGIN
     Indication: Scrub typhus
     Dosage: UNK
     Route: 065
  10. CASPOFUNGIN [Suspect]
     Active Substance: CASPOFUNGIN
     Indication: Sepsis

REACTIONS (2)
  - Drug ineffective [Fatal]
  - Off label use [Unknown]
